FAERS Safety Report 7337504-8 (Version None)
Quarter: 2011Q1

REPORT INFORMATION
  Report Type: 
  Country: None (occurrence: None)
  Receive Date: 20110308
  Receipt Date: 20110225
  Transmission Date: 20110831
  Serious: Yes (Hospitalization, Other)
  Sender: FDA-Public Use
  Company Number: JP-JNJFOC-20101006346

PATIENT
  Sex: Female
  Weight: 61 kg

DRUGS (9)
  1. REMICADE [Suspect]
     Indication: RHEUMATOID ARTHRITIS
     Dosage: 41ST DOSE
     Route: 042
  2. REMICADE [Suspect]
     Dosage: 42ND DOSE
     Route: 042
  3. REMICADE [Suspect]
     Dosage: 1ST DOSE
     Route: 042
  4. METHOTREXATE [Concomitant]
     Indication: RHEUMATOID ARTHRITIS
     Dosage: 6-8 MG
     Route: 048
  5. LOXONIN [Concomitant]
     Indication: RHEUMATOID ARTHRITIS
     Route: 048
  6. STEROIDS NOS [Suspect]
     Indication: ILL-DEFINED DISORDER
     Route: 048
  7. UNKNOWN THERAPEUTIC AGENT [Suspect]
     Indication: PRODUCT USED FOR UNKNOWN INDICATION
     Route: 048
  8. MUCOSTA [Concomitant]
     Indication: PROPHYLAXIS AGAINST GASTROINTESTINAL ULCER
     Route: 048
  9. REMICADE [Suspect]
     Dosage: DOSES 2 THROUGH 40
     Route: 042

REACTIONS (2)
  - ADENOCARCINOMA OF THE CERVIX [None]
  - ARTHRALGIA [None]
